FAERS Safety Report 18243570 (Version 1)
Quarter: 2020Q3

REPORT INFORMATION
  Report Type: Spontaneous
  Country: PT (occurrence: PT)
  Receive Date: 20200908
  Receipt Date: 20200908
  Transmission Date: 20201103
  Serious: Yes (Other)
  Sender: FDA-Public Use
  Company Number: PT-MYLANLABS-2020M1077069

PATIENT
  Age: 32 Year
  Sex: Female

DRUGS (6)
  1. CISPLATIN. [Concomitant]
     Active Substance: CISPLATIN
     Indication: LUNG ADENOCARCINOMA STAGE IV
     Dosage: UNK UNK, CYCLE
     Route: 065
  2. GEMCITABINE. [Suspect]
     Active Substance: GEMCITABINE
     Indication: LUNG ADENOCARCINOMA
     Route: 065
  3. PEMETREXED. [Concomitant]
     Active Substance: PEMETREXED
     Indication: LUNG ADENOCARCINOMA STAGE IV
     Dosage: SHE RECEIVED 4 CYCLES FOLLOWED BY MAINTENANCE THERAPY
     Route: 065
  4. CARBOPLATIN. [Suspect]
     Active Substance: CARBOPLATIN
     Indication: LUNG ADENOCARCINOMA STAGE IV
     Dosage: AUC5 ON DAY 1 4/4WEEKS
     Route: 065
  5. PACLITAXEL. [Suspect]
     Active Substance: PACLITAXEL
     Indication: LUNG ADENOCARCINOMA STAGE IV
     Dosage: 80 MILLIGRAM/SQ. METER, ON DAY 1, DAY 8 AND DAY 15 4/4 WEEKS
     Route: 065
  6. PEMBROLIZUMAB. [Suspect]
     Active Substance: PEMBROLIZUMAB
     Indication: LUNG ADENOCARCINOMA
     Dosage: 2 MILLIGRAM/KILOGRAM, THREE CYCLES
     Route: 065

REACTIONS (4)
  - Deep vein thrombosis [Unknown]
  - Normal newborn [Recovered/Resolved]
  - Ischaemic stroke [Unknown]
  - Maternal exposure during pregnancy [Recovered/Resolved]
